FAERS Safety Report 21758514 (Version 1)
Quarter: 2022Q4

REPORT INFORMATION
  Report Type: Spontaneous
  Country: US (occurrence: None)
  Receive Date: 20221221
  Receipt Date: 20221221
  Transmission Date: 20230113
  Serious: No
  Sender: FDA-Public Use
  Company Number: US-ROCHE-3191081

PATIENT
  Sex: Female

DRUGS (1)
  1. GAZYVA [Suspect]
     Active Substance: OBINUTUZUMAB
     Indication: Chronic lymphocytic leukaemia
     Dosage: 100MG OF GAZYVA ON DAY 1 AND THEN 900MG OF GAZYVA ON DAY 2.
     Route: 042
     Dates: start: 20220926

REACTIONS (1)
  - Illness [Unknown]
